FAERS Safety Report 9457024 (Version 2)
Quarter: 2018Q1

REPORT INFORMATION
  Report Type: Report from Study
  Country: GB (occurrence: GB)
  Receive Date: 20130814
  Receipt Date: 20180112
  Transmission Date: 20180509
  Serious: Yes (Hospitalization)
  Sender: FDA-Public Use
  Company Number: GB-ROCHE-1261263

PATIENT
  Age: 76 Year
  Sex: Male
  Weight: 90 kg

DRUGS (3)
  1. SALAZOPYRIN [Concomitant]
     Active Substance: SULFASALAZINE
  2. TOCILIZUMAB. [Suspect]
     Active Substance: TOCILIZUMAB
     Indication: RHEUMATOID ARTHRITIS
     Route: 065
     Dates: start: 20121122
  3. HYDROXYCHLOROQUINE [Concomitant]
     Active Substance: HYDROXYCHLOROQUINE

REACTIONS (2)
  - Angina pectoris [Unknown]
  - Angina unstable [Unknown]

NARRATIVE: CASE EVENT DATE: 20171115
